FAERS Safety Report 15325148 (Version 2)
Quarter: 2018Q4

REPORT INFORMATION
  Report Type: Spontaneous
  Country: US (occurrence: US)
  Receive Date: 20180828
  Receipt Date: 20181010
  Transmission Date: 20190204
  Serious: No
  Sender: FDA-Public Use
  Company Number: US-UNITED THERAPEUTICS-UNT-2018-012014

PATIENT
  Sex: Female
  Weight: 65.76 kg

DRUGS (3)
  1. ADCIRCA [Concomitant]
     Active Substance: TADALAFIL
     Indication: PRODUCT USED FOR UNKNOWN INDICATION
     Route: 065
  2. LETAIRIS [Concomitant]
     Active Substance: AMBRISENTAN
     Indication: PRODUCT USED FOR UNKNOWN INDICATION
     Route: 065
  3. ORENITRAM [Suspect]
     Active Substance: TREPROSTINIL
     Indication: PULMONARY ARTERIAL HYPERTENSION
     Dosage: 2.5 MG, BID
     Route: 048
     Dates: start: 20170509

REACTIONS (8)
  - Cough [Unknown]
  - Sinusitis [Unknown]
  - Nasal dryness [Unknown]
  - Dry skin [Unknown]
  - Wheezing [Unknown]
  - Nasal congestion [Unknown]
  - Epistaxis [Unknown]
  - Oedema [Unknown]

NARRATIVE: CASE EVENT DATE: 2018
